FAERS Safety Report 16753418 (Version 1)
Quarter: 2019Q3

REPORT INFORMATION
  Report Type: Spontaneous
  Country: GB (occurrence: GB)
  Receive Date: 20190829
  Receipt Date: 20190829
  Transmission Date: 20191005
  Serious: Yes (Death, Hospitalization)
  Sender: FDA-Public Use
  Company Number: GB-TEVA-2019-GB-1097961

PATIENT
  Age: 74 Year
  Sex: Male
  Weight: 92 kg

DRUGS (1)
  1. ALLOPURINOL. [Suspect]
     Active Substance: ALLOPURINOL
     Indication: GOUT
     Dosage: 100 MILLIGRAM PER DAY
     Route: 048
     Dates: start: 20180212

REACTIONS (4)
  - Toxic epidermal necrolysis [Fatal]
  - Rash [Fatal]
  - Pseudomonal sepsis [Fatal]
  - Mucosal ulceration [Fatal]

NARRATIVE: CASE EVENT DATE: 20180321
